FAERS Safety Report 4970227-9 (Version None)
Quarter: 2006Q2

REPORT INFORMATION
  Report Type: 
  Country: None (occurrence: None)
  Receive Date: 20060406
  Receipt Date: 20060315
  Transmission Date: 20061013
  Serious: Yes (Hospitalization)
  Sender: FDA-Public Use
  Company Number: US200511002268

PATIENT
  Age: 69 Year
  Sex: Female
  Weight: 73.5 kg

DRUGS (14)
  1. ZYPREXA [Suspect]
     Dosage: SEE IMAGE
     Dates: start: 20000629, end: 20010925
  2. ZYPREXA [Suspect]
     Dosage: SEE IMAGE
     Dates: end: 20030101
  3. ZYPREXA [Suspect]
     Dosage: SEE IMAGE
     Dates: start: 20000827
  4. SEROQUEL [Concomitant]
  5. SERZONE [Concomitant]
  6. PAXIL [Concomitant]
  7. ZOLOFT [Concomitant]
  8. EFFEXOR [Concomitant]
  9. BETA BLOCKING AGENTS [Concomitant]
  10. PREDNISONE [Concomitant]
  11. DIURETICS [Concomitant]
  12. ELAVIL [Concomitant]
  13. KLONOPIN [Concomitant]
  14. LAMICTAL [Concomitant]

REACTIONS (4)
  - DIABETES MELLITUS NON-INSULIN-DEPENDENT [None]
  - HEPATIC STEATOSIS [None]
  - NEUROPATHY PERIPHERAL [None]
  - ULCER HAEMORRHAGE [None]
